FAERS Safety Report 5313014-4 (Version None)
Quarter: 2007Q2

REPORT INFORMATION
  Report Type: 
  Country: None (occurrence: None)
  Receive Date: 20070430
  Receipt Date: 20070418
  Transmission Date: 20071010
  Serious: Yes (Hospitalization, Other)
  Sender: FDA-Public Use
  Company Number: FR-PFIZER INC-2007016873

PATIENT
  Sex: Male

DRUGS (2)
  1. NEURONTIN [Suspect]
     Indication: NEURALGIA
  2. LYRICA [Suspect]
     Indication: NEURALGIA

REACTIONS (4)
  - DRY EYE [None]
  - NEUROPATHY PERIPHERAL [None]
  - SJOGREN'S SYNDROME [None]
  - VISUAL ACUITY REDUCED [None]
